FAERS Safety Report 10583895 (Version 2)
Quarter: 2014Q4

REPORT INFORMATION
  Report Type: Spontaneous
  Country: US (occurrence: US)
  Receive Date: 20141114
  Receipt Date: 20141222
  Transmission Date: 20150529
  Serious: Yes (Other)
  Sender: FDA-Public Use
  Company Number: US-ELI_LILLY_AND_COMPANY-US201411002529

PATIENT
  Sex: Female

DRUGS (2)
  1. GLIPIZIDE. [Concomitant]
     Active Substance: GLIPIZIDE
  2. HUMALOG [Suspect]
     Active Substance: INSULIN LISPRO
     Indication: TYPE 2 DIABETES MELLITUS
     Dosage: 12 U, BID
     Route: 065
     Dates: start: 2012

REACTIONS (6)
  - Retinal detachment [Not Recovered/Not Resolved]
  - Visual acuity reduced [Unknown]
  - Vitreous haemorrhage [Unknown]
  - Blindness unilateral [Not Recovered/Not Resolved]
  - Cataract [Unknown]
  - Diabetic retinopathy [Not Recovered/Not Resolved]
